FAERS Safety Report 24621027 (Version 1)
Quarter: 2024Q4

REPORT INFORMATION
  Report Type: Spontaneous
  Country: US (occurrence: US)
  Receive Date: 20241114
  Receipt Date: 20241114
  Transmission Date: 20250114
  Serious: No
  Sender: SANDOZ
  Company Number: US-SANDOZ-SDZ2024US095168

PATIENT
  Sex: Female

DRUGS (1)
  1. ALBUTEROL SULFATE [Suspect]
     Active Substance: ALBUTEROL SULFATE
     Indication: Asthma
     Dosage: 90 UG, ONCE TO TWO PUFFS EVERY 4 HOURS, INHALE THROUGH THE MOUTH
     Route: 055

REACTIONS (2)
  - Drug administered in wrong device [Unknown]
  - Device ineffective [Unknown]
